FAERS Safety Report 5613302-8 (Version None)
Quarter: 2008Q1

REPORT INFORMATION
  Report Type: 
  Country: None (occurrence: None)
  Receive Date: 20080130
  Receipt Date: 20080121
  Transmission Date: 20080703
  Serious: Yes (Hospitalization)
  Sender: FDA-Public Use
  Company Number: GXKR2008NZ00986

PATIENT
  Age: 58 Year
  Sex: Female

DRUGS (13)
  1. METHYLENE BLUE (NGX) (METHYLENE BLUE) UNKNOWN [Suspect]
     Indication: DIAGNOSTIC PROCEDURE
     Dosage: 5 MG/KG OVER ONE HOUR
  2. PAROXETINE HCL [Suspect]
     Indication: OBSESSIVE-COMPULSIVE DISORDER
     Dosage: 60 MG/DAY
  3. OMEPRAZOLE [Concomitant]
  4. SIMVASTATIN [Concomitant]
  5. MIDAZOLAM HCL [Concomitant]
  6. FENTANYL [Concomitant]
  7. PROPOFOL [Concomitant]
  8. ROCURONIUM (ROCURONIUM) [Concomitant]
  9. SEVOFLURANE [Concomitant]
  10. EPHEDRINE SUL CAP [Concomitant]
  11. METARAMINOL (METARAMINOL) [Concomitant]
  12. NEOSTIGMINE (NEOSTIGMINE) [Concomitant]
  13. ATROPINE [Concomitant]

REACTIONS (8)
  - DISORIENTATION [None]
  - DRUG INTERACTION [None]
  - DYSKINESIA [None]
  - EYE MOVEMENT DISORDER [None]
  - FEAR [None]
  - SEDATION [None]
  - SEROTONIN SYNDROME [None]
  - UNRESPONSIVE TO STIMULI [None]
